FAERS Safety Report 12758821 (Version 2)
Quarter: 2016Q4

REPORT INFORMATION
  Report Type: Spontaneous
  Country: BR (occurrence: BR)
  Receive Date: 20160919
  Receipt Date: 20161005
  Transmission Date: 20170207
  Serious: Yes (Hospitalization, Other)
  Sender: FDA-Public Use
  Company Number: PHHY2016BR128229

PATIENT
  Age: 68 Year
  Sex: Female

DRUGS (1)
  1. GILENYA [Suspect]
     Active Substance: FINGOLIMOD HYDROCHLORIDE
     Indication: PRODUCT USED FOR UNKNOWN INDICATION
     Dosage: UNK
     Route: 065

REACTIONS (13)
  - Blood pressure increased [Unknown]
  - Cardiac failure [Unknown]
  - Dyspnoea [Unknown]
  - Dysgeusia [Unknown]
  - Hyperhidrosis [Unknown]
  - Tachycardia [Unknown]
  - Myocardial oedema [Unknown]
  - Feeling abnormal [Unknown]
  - Fatigue [Unknown]
  - Eye swelling [Unknown]
  - Malaise [Unknown]
  - Speech disorder [Unknown]
  - Drug ineffective [Unknown]

NARRATIVE: CASE EVENT DATE: 201509
